FAERS Safety Report 9769647 (Version 2)
Quarter: 2014Q1

REPORT INFORMATION
  Report Type: Report from Study
  Country: DE (occurrence: DE)
  Receive Date: 20131218
  Receipt Date: 20140122
  Transmission Date: 20141002
  Serious: Yes (Hospitalization)
  Sender: FDA-Public Use
  Company Number: DE-ABBVIE-13P-062-1180971-00

PATIENT
  Age: 23 Year
  Sex: Male
  Weight: 62 kg

DRUGS (3)
  1. HUMIRA [Suspect]
     Indication: CROHN^S DISEASE
     Route: 058
     Dates: start: 20120126, end: 20131001
  2. HUMIRA [Suspect]
     Route: 058
     Dates: start: 20131112
  3. AZATHIOPRINE [Concomitant]
     Indication: CROHN^S DISEASE

REACTIONS (2)
  - Intestinal stenosis [Recovered/Resolved]
  - Abdominal pain [Recovered/Resolved]
